FAERS Safety Report 10286182 (Version 1)
Quarter: 2014Q3

REPORT INFORMATION
  Report Type: Spontaneous
  Country: US (occurrence: US)
  Receive Date: 20140709
  Receipt Date: 20140709
  Transmission Date: 20150326
  Serious: No
  Sender: FDA-Public Use
  Company Number: US-US-EMD SERONO, INC.-7303067

PATIENT
  Sex: Female

DRUGS (2)
  1. REBIF [Suspect]
     Active Substance: INTERFERON BETA-1A
     Indication: MULTIPLE SCLEROSIS
  2. REBIF [Suspect]
     Active Substance: INTERFERON BETA-1A

REACTIONS (10)
  - Decreased activity [Unknown]
  - Weight increased [Unknown]
  - Malaise [Unknown]
  - Pain [Unknown]
  - Fear of injection [Recovering/Resolving]
  - Hypokinesia [Unknown]
  - Influenza like illness [Unknown]
  - Anxiety [Recovering/Resolving]
  - Asthenia [Unknown]
  - Apathy [Unknown]
